FAERS Safety Report 7454025-2 (Version None)
Quarter: 2011Q2

REPORT INFORMATION
  Report Type: 
  Country: None (occurrence: None)
  Receive Date: 20110502
  Receipt Date: 20110328
  Transmission Date: 20111010
  Serious: No
  Sender: FDA-Public Use
  Company Number: US-BAYER-2011-026977

PATIENT
  Sex: Female

DRUGS (2)
  1. AVELOX [Suspect]
     Indication: RESPIRATORY TRACT CONGESTION
  2. AVELOX [Suspect]
     Indication: NASOPHARYNGITIS

REACTIONS (3)
  - HYPOAESTHESIA [None]
  - DIZZINESS [None]
  - PALPITATIONS [None]
